FAERS Safety Report 25447753 (Version 1)
Quarter: 2025Q2

REPORT INFORMATION
  Report Type: Spontaneous
  Country: US (occurrence: US)
  Receive Date: 20250617
  Receipt Date: 20250617
  Transmission Date: 20250716
  Serious: Yes (Death)
  Sender: PFIZER
  Company Number: US-PFIZER INC-202500121164

PATIENT
  Age: 74 Year
  Sex: Male
  Weight: 95.1 kg

DRUGS (3)
  1. INLYTA [Suspect]
     Active Substance: AXITINIB
     Indication: Renal cancer
     Dosage: 5 MILLIGRAM EVERY 12 HOURS
     Route: 048
     Dates: start: 20250514, end: 2025
  2. INLYTA [Suspect]
     Active Substance: AXITINIB
     Indication: Hyperglycaemia
  3. INLYTA [Suspect]
     Active Substance: AXITINIB
     Indication: Hypercalcaemia

REACTIONS (1)
  - Death [Fatal]

NARRATIVE: CASE EVENT DATE: 20250608
